FAERS Safety Report 9526871 (Version 1)
Quarter: 2013Q1

REPORT INFORMATION
  Report Type: Spontaneous
  Country: US (occurrence: None)
  Receive Date: 20130311
  Receipt Date: 20130311
  Transmission Date: 20140127
  Serious: No
  Sender: FDA-Public Use
  Company Number: 1212USA003006

PATIENT
  Age: 64 Year
  Sex: Female

DRUGS (1)
  1. ZIOPTAN (TAFLUPOST) EYE DROPS, SOLUTION [Suspect]
     Indication: INTRAOCULAR PRESSURE TEST
     Route: 031
     Dates: start: 20121203, end: 20121205

REACTIONS (3)
  - Eye pain [None]
  - Photophobia [None]
  - Eye haemorrhage [None]
